FAERS Safety Report 23823310 (Version 1)
Quarter: 2024Q2

REPORT INFORMATION
  Report Type: Spontaneous
  Country: US (occurrence: US)
  Receive Date: 20240507
  Receipt Date: 20240507
  Transmission Date: 20240716
  Serious: Yes (Other)
  Sender: FDA-Public Use
  Company Number: US-ABBVIE-5744480

PATIENT
  Sex: Female

DRUGS (2)
  1. RESTASIS [Suspect]
     Active Substance: CYCLOSPORINE
     Indication: Product used for unknown indication
     Dosage: FORM STRENGTH; 0.5MG/ML EMULSION
     Route: 047
  2. RESTASIS [Suspect]
     Active Substance: CYCLOSPORINE
     Dosage: FORM STRENGTH; 0.5MG/ML EMULSION
     Route: 047

REACTIONS (6)
  - Systemic lupus erythematosus [Unknown]
  - Injury corneal [Unknown]
  - Eye disorder [Unknown]
  - Nervous system disorder [Unknown]
  - Arthritis [Unknown]
  - Eye injury [Unknown]
